FAERS Safety Report 24017316 (Version 2)
Quarter: 2024Q3

REPORT INFORMATION
  Report Type: Spontaneous
  Country: US (occurrence: US)
  Receive Date: 20240627
  Receipt Date: 20240705
  Transmission Date: 20241017
  Serious: Yes (Other)
  Sender: UCB
  Company Number: US-UCBSA-2024032424

PATIENT
  Age: 13 Year
  Sex: Male

DRUGS (2)
  1. BRIVIACT [Suspect]
     Active Substance: BRIVARACETAM
     Indication: Epilepsy
     Dosage: 3.5 TABLETS IN THE AM AND 3.5 TABLETS AT PM. (TOTAL: 7 -25MG TABLETS/DAILY)
     Dates: start: 20230501
  2. BRIVIACT [Suspect]
     Active Substance: BRIVARACETAM
     Dosage: 1.5 DOSAGE FORM, 2X/DAY (BID)
     Dates: start: 20240623, end: 20240624

REACTIONS (4)
  - Seizure [Not Recovered/Not Resolved]
  - Incorrect dose administered [Unknown]
  - Product availability issue [Unknown]
  - Therapy interrupted [Unknown]

NARRATIVE: CASE EVENT DATE: 20240620
